FAERS Safety Report 7191189-2 (Version None)
Quarter: 2010Q4

REPORT INFORMATION
  Report Type: 
  Country: None (occurrence: None)
  Receive Date: 20101221
  Receipt Date: 20101221
  Transmission Date: 20110411
  Serious: Yes (Hospitalization)
  Sender: FDA-Public Use
  Company Number: None

PATIENT
  Age: 55 Year
  Sex: Female
  Weight: 74.3899 kg

DRUGS (1)
  1. ISOVUE-300 [Suspect]
     Indication: SCAN BRAIN
     Dosage: 80ML X1 IV BOLUS    X1 DOSE
     Route: 040
     Dates: start: 20101210, end: 20101210

REACTIONS (2)
  - CHEST PAIN [None]
  - VOMITING [None]
